FAERS Safety Report 9225329 (Version 2)
Quarter: 2013Q2

REPORT INFORMATION
  Report Type: Spontaneous
  Country: US (occurrence: US)
  Receive Date: 20130411
  Receipt Date: 20130418
  Transmission Date: 20140414
  Serious: Yes (Death)
  Sender: FDA-Public Use
  Company Number: US-ROCHE-1208494

PATIENT
  Age: 37 Year
  Sex: Male

DRUGS (2)
  1. ACTILYSE [Suspect]
     Indication: PORTAL VEIN THROMBOSIS
     Route: 065
  2. HEPARIN [Suspect]
     Indication: PORTAL VEIN THROMBOSIS
     Route: 065

REACTIONS (1)
  - Multi-organ failure [Fatal]
